FAERS Safety Report 11936651 (Version 1)
Quarter: 2016Q1

REPORT INFORMATION
  Report Type: Report from Study
  Country: US (occurrence: US)
  Receive Date: 20160121
  Receipt Date: 20160121
  Transmission Date: 20160526
  Serious: Yes (Hospitalization, Other)
  Sender: FDA-Public Use
  Company Number: US-GILEAD-2016-0194100

PATIENT
  Age: 60 Year
  Sex: Female

DRUGS (13)
  1. AMBRISENTAN [Suspect]
     Active Substance: AMBRISENTAN
     Indication: PULMONARY HYPERTENSION
     Dosage: 5 MG, QD
     Route: 065
     Dates: start: 20120601
  2. MULTIVITAMINS [Concomitant]
     Active Substance: VITAMINS
  3. CILOSTAZOL. [Concomitant]
     Active Substance: CILOSTAZOL
  4. LEVOTHYROXINE. [Concomitant]
     Active Substance: LEVOTHYROXINE
  5. PREDNISONE. [Concomitant]
     Active Substance: PREDNISONE
  6. RESTASIS [Concomitant]
     Active Substance: CYCLOSPORINE
  7. CEVIMELINE. [Concomitant]
     Active Substance: CEVIMELINE
  8. FOSINOPRIL [Concomitant]
     Active Substance: FOSINOPRIL
  9. NIFEDIPINE. [Concomitant]
     Active Substance: NIFEDIPINE
  10. COQ 10 [Concomitant]
     Active Substance: UBIDECARENONE
  11. FOLIC ACID. [Concomitant]
     Active Substance: FOLIC ACID
  12. DEXILANT [Concomitant]
     Active Substance: DEXLANSOPRAZOLE
  13. ADCIRCA [Concomitant]
     Active Substance: TADALAFIL

REACTIONS (1)
  - Nephrolithiasis [Recovering/Resolving]
